FAERS Safety Report 7931853-8 (Version None)
Quarter: 2011Q4

REPORT INFORMATION
  Report Type: 
  Country: None (occurrence: None)
  Receive Date: 20111121
  Receipt Date: 20111110
  Transmission Date: 20120403
  Serious: Yes (Hospitalization)
  Sender: FDA-Public Use
  Company Number: US-ASTRAZENECA-2011SE49884

PATIENT
  Age: 57 Year
  Sex: Male
  Weight: 83.9 kg

DRUGS (11)
  1. SEROQUEL [Suspect]
     Indication: SLEEP DISORDER
     Route: 048
  2. SEROQUEL [Suspect]
     Route: 048
  3. SEROQUEL [Suspect]
     Route: 048
  4. SEROQUEL [Suspect]
     Indication: PSYCHOTIC DISORDER
     Route: 048
  5. DEPAKOTE [Concomitant]
  6. CLARITIN [Concomitant]
     Dosage: TID
  7. SEROQUEL [Suspect]
     Route: 048
  8. TELEPRAM [Concomitant]
  9. LITHIUM CARBONATE [Concomitant]
  10. SEROQUEL [Suspect]
     Route: 048
  11. RESIDIME [Concomitant]
     Dosage: HS

REACTIONS (4)
  - INSOMNIA [None]
  - DRUG DOSE OMISSION [None]
  - POOR QUALITY SLEEP [None]
  - OFF LABEL USE [None]
